FAERS Safety Report 7712031-4 (Version None)
Quarter: 2011Q3

REPORT INFORMATION
  Report Type: 
  Country: None (occurrence: None)
  Receive Date: 20110826
  Receipt Date: 20110815
  Transmission Date: 20111222
  Serious: Yes (Other)
  Sender: FDA-Public Use
  Company Number: PH-TYCO HEALTHCARE/MALLINCKRODT-T201101584

PATIENT
  Age: 30 Year
  Sex: Female

DRUGS (1)
  1. SODIUM IODIDE I 131 [Suspect]
     Indication: THYROID CANCER
     Dosage: 100 MCI, SINGLE

REACTIONS (7)
  - LOSS OF CONSCIOUSNESS [None]
  - VOMITING [None]
  - CEREBRAL INFARCTION [None]
  - HYPONATRAEMIA [None]
  - BRAIN OEDEMA [None]
  - DIZZINESS [None]
  - NAUSEA [None]
